FAERS Safety Report 13902008 (Version 1)
Quarter: 2017Q3

REPORT INFORMATION
  Report Type: Report from Study
  Country: None (occurrence: US)
  Receive Date: 20170824
  Receipt Date: 20170824
  Transmission Date: 20171127
  Serious: Yes (Other)
  Sender: FDA-Public Use
  Company Number: US-ABBVIE-17K-163-2053651-00

PATIENT
  Sex: Female

DRUGS (1)
  1. HUMIRA [Suspect]
     Active Substance: ADALIMUMAB
     Indication: RHEUMATOID ARTHRITIS
     Route: 058
     Dates: end: 20170620

REACTIONS (7)
  - Nasopharyngitis [Recovered/Resolved]
  - Stress urinary incontinence [Recovered/Resolved]
  - Laryngitis [Not Recovered/Not Resolved]
  - Pneumonia [Recovering/Resolving]
  - Asthma [Recovering/Resolving]
  - Cartilage injury [Recovered/Resolved]
  - Bronchitis [Not Recovered/Not Resolved]

NARRATIVE: CASE EVENT DATE: 2017
